FAERS Safety Report 13627745 (Version 1)
Quarter: 2017Q2

REPORT INFORMATION
  Report Type: Spontaneous
  Country: US (occurrence: US)
  Receive Date: 20170531
  Receipt Date: 20170531
  Transmission Date: 20170830
  Serious: Yes (Other)
  Sender: FDA-Public Use
  Company Number: US-ASTELLAS-1576444

PATIENT
  Age: 70 Year
  Sex: Male

DRUGS (11)
  1. TARCEVA [Interacting]
     Active Substance: ERLOTINIB HYDROCHLORIDE
     Route: 048
     Dates: start: 20140717
  2. TARCEVA [Interacting]
     Active Substance: ERLOTINIB HYDROCHLORIDE
     Route: 048
     Dates: start: 20140617
  3. DULERA [Concomitant]
     Active Substance: FORMOTEROL FUMARATE DIHYDRATE\MOMETASONE FUROATE
  4. RANITIDINE. [Concomitant]
     Active Substance: RANITIDINE
  5. TARCEVA [Interacting]
     Active Substance: ERLOTINIB HYDROCHLORIDE
     Route: 048
     Dates: start: 20140612, end: 20140625
  6. TARCEVA [Interacting]
     Active Substance: ERLOTINIB HYDROCHLORIDE
     Route: 048
     Dates: start: 20140626
  7. TUSSIONEX (UNK INGREDIENTS) [Concomitant]
  8. TARCEVA [Suspect]
     Active Substance: ERLOTINIB HYDROCHLORIDE
     Indication: LUNG NEOPLASM MALIGNANT
     Route: 048
     Dates: start: 20140613
  9. OMEPRAZOLE. [Interacting]
     Active Substance: OMEPRAZOLE
     Indication: PRODUCT USED FOR UNKNOWN INDICATION
     Route: 065
  10. FINASTERIDE. [Concomitant]
     Active Substance: FINASTERIDE
  11. FLOMAX [Concomitant]
     Active Substance: TAMSULOSIN HYDROCHLORIDE

REACTIONS (11)
  - Fatigue [Unknown]
  - Foreign body [Unknown]
  - Ageusia [Unknown]
  - Rash [Unknown]
  - Cough [Unknown]
  - Drug interaction [Unknown]
  - Sleep disorder [Unknown]
  - Diarrhoea [Unknown]
  - Neoplasm progression [Unknown]
  - Pruritus [Unknown]
  - Rash pruritic [Not Recovered/Not Resolved]

NARRATIVE: CASE EVENT DATE: 20140612
